FAERS Safety Report 21308753 (Version 2)
Quarter: 2022Q3

REPORT INFORMATION
  Report Type: Spontaneous
  Country: IR (occurrence: IR)
  Receive Date: 20220908
  Receipt Date: 20220923
  Transmission Date: 20221027
  Serious: Yes (Death, Other)
  Sender: FDA-Public Use
  Company Number: IR-BIOMARINAP-IR-2022-145372

PATIENT

DRUGS (1)
  1. NAGLAZYME [Suspect]
     Active Substance: GALSULFASE
     Indication: Mucopolysaccharidosis VI
     Route: 065

REACTIONS (4)
  - Graft versus host disease [Fatal]
  - Pneumonia [Unknown]
  - Gastrointestinal infection [Unknown]
  - Bone marrow transplant [Unknown]
